FAERS Safety Report 22160821 (Version 1)
Quarter: 2023Q1

REPORT INFORMATION
  Report Type: Spontaneous
  Country: CN (occurrence: CN)
  Receive Date: 20230331
  Receipt Date: 20230331
  Transmission Date: 20230417
  Serious: Yes (Hospitalization)
  Sender: FDA-Public Use
  Company Number: None

PATIENT
  Age: 48 Year
  Sex: Male
  Weight: 72.5 kg

DRUGS (4)
  1. LIPIODOL [Suspect]
     Active Substance: ETHIODIZED OIL
     Indication: Interventional procedure
     Route: 013
     Dates: start: 20200915, end: 20200915
  2. LOBAPLATIN [Suspect]
     Active Substance: LOBAPLATIN
     Indication: Interventional procedure
     Route: 013
     Dates: start: 20200915, end: 20200915
  3. EPIRUBICIN [Suspect]
     Active Substance: EPIRUBICIN
     Indication: Interventional procedure
     Route: 013
     Dates: start: 20200915, end: 20200915
  4. BUCINNAZINE HYDROCHLORIDE [Suspect]
     Active Substance: BUCINNAZINE HYDROCHLORIDE
     Indication: Analgesic therapy
     Route: 030
     Dates: start: 20200916, end: 20200916

REACTIONS (5)
  - Drug eruption [Recovered/Resolved]
  - Pharyngeal swelling [Recovered/Resolved]
  - Chest discomfort [Recovered/Resolved]
  - Pruritus [Recovered/Resolved]
  - Hepatic pain [Recovered/Resolved]

NARRATIVE: CASE EVENT DATE: 20200916
